FAERS Safety Report 19815880 (Version 1)
Quarter: 2021Q3

REPORT INFORMATION
  Report Type: Report from Study
  Country: US (occurrence: US)
  Receive Date: 20210909
  Receipt Date: 20210909
  Transmission Date: 20211014
  Serious: Yes (Hospitalization)
  Sender: FDA-Public Use
  Company Number: US-ROCHE-2901437

PATIENT
  Age: 80 Year
  Sex: Male

DRUGS (4)
  1. NAB?PACLITAXEL [Concomitant]
     Active Substance: PACLITAXEL
     Indication: PANCREATIC CARCINOMA
     Dosage: LAST BEFORE SAE 20?07?2021
     Route: 065
     Dates: start: 20210525
  2. ATEZOLIZUMAB. [Suspect]
     Active Substance: ATEZOLIZUMAB
     Indication: PANCREATIC CARCINOMA
     Route: 041
     Dates: start: 20210525, end: 20210720
  3. GEMCITABINE. [Concomitant]
     Active Substance: GEMCITABINE
     Indication: PANCREATIC CARCINOMA
     Dosage: LAST BEFORE SAE 20?07?2021
     Route: 065
     Dates: start: 20210525
  4. LASIX [Concomitant]
     Active Substance: FUROSEMIDE
     Indication: POLYURIA

REACTIONS (2)
  - Acute kidney injury [Not Recovered/Not Resolved]
  - Dyspnoea [Recovered/Resolved]

NARRATIVE: CASE EVENT DATE: 20210816
